FAERS Safety Report 9081112 (Version 1)
Quarter: 2013Q1

REPORT INFORMATION
  Report Type: Report from Study
  Country: US (occurrence: US)
  Receive Date: 20130130
  Receipt Date: 20130130
  Transmission Date: 20140127
  Serious: No
  Sender: FDA-Public Use
  Company Number: US-ABBOTT-12P-163-0977867-00

PATIENT
  Age: 67 Year
  Sex: Female

DRUGS (8)
  1. HUMIRA [Suspect]
     Indication: CROHN^S DISEASE
     Dates: start: 20120806, end: 20120806
  2. HUMIRA [Suspect]
     Dates: start: 20120820, end: 20120820
  3. HUMIRA [Suspect]
     Dates: start: 20120903
  4. SOTALOL [Concomitant]
     Indication: CARDIAC DISORDER
     Dosage: 1 TAB IN AM AND 1 TAB IN PM
  5. DEXILANT [Concomitant]
     Indication: GASTROOESOPHAGEAL REFLUX DISEASE
  6. LEXAPRO [Concomitant]
     Indication: DEPRESSION
  7. AMBIEN CR [Concomitant]
     Indication: INSOMNIA
     Dosage: AT NIGHT
  8. PREMARIN [Concomitant]
     Indication: HORMONE REPLACEMENT THERAPY

REACTIONS (1)
  - Diarrhoea [Not Recovered/Not Resolved]
